FAERS Safety Report 8013025-4 (Version None)
Quarter: 2011Q4

REPORT INFORMATION
  Report Type: 
  Country: None (occurrence: None)
  Receive Date: 20111229
  Receipt Date: 20111222
  Transmission Date: 20120403
  Serious: Yes (Other)
  Sender: FDA-Public Use
  Company Number: HU-JNJFOC-20111209954

PATIENT
  Age: 29 Year
  Sex: Male

DRUGS (1)
  1. REMICADE [Suspect]
     Indication: BEHCET'S SYNDROME
     Dosage: 0, 2 AND 6 WEEK OCCASIONALLY 5 MG/BODY WEIGHT KG, THEN ON EVERY 8TH WEEK CONTINUOUSLY
     Route: 042
     Dates: start: 20110907

REACTIONS (1)
  - NO ADVERSE EVENT [None]
